FAERS Safety Report 9176423 (Version 2)
Quarter: 2013Q2

REPORT INFORMATION
  Report Type: Spontaneous
  Country: GB (occurrence: GB)
  Receive Date: 20130321
  Receipt Date: 20130402
  Transmission Date: 20140414
  Serious: Yes (Other)
  Sender: FDA-Public Use
  Company Number: GB-RANBAXY-2013R1-66295

PATIENT
  Age: 30 Year
  Sex: Female
  Weight: 70 kg

DRUGS (2)
  1. RISPERIDONE [Suspect]
     Indication: SCHIZOPHRENIA
     Route: 048
  2. XEPLION [Suspect]
     Indication: SCHIZOPHRENIA
     Dosage: 50 MG, 1/4 WEEKS
     Route: 030
     Dates: start: 20120622, end: 20121114

REACTIONS (3)
  - Exposure during pregnancy [Recovered/Resolved]
  - Haemorrhage in pregnancy [Unknown]
  - Oligohydramnios [Unknown]
